FAERS Safety Report 4993192-7 (Version None)
Quarter: 2006Q1

REPORT INFORMATION
  Report Type: 
  Country: None (occurrence: None)
  Receive Date: 20060313
  Receipt Date: 20051101
  Transmission Date: 20060701
  Serious: No
  Sender: FDA-Public Use
  Company Number: 2005-BP-19127BP

PATIENT
  Sex: 0

DRUGS (1)
  1. SPIRIVA [Suspect]
     Dosage: (18 MCG), IH
     Route: 055

REACTIONS (2)
  - DYSPNOEA [None]
  - DYSPNOEA EXACERBATED [None]
